FAERS Safety Report 21245708 (Version 1)
Quarter: 2022Q3

REPORT INFORMATION
  Report Type: Spontaneous
  Country: US (occurrence: None)
  Receive Date: 20220824
  Receipt Date: 20220824
  Transmission Date: 20221026
  Serious: Yes (Hospitalization)
  Sender: FDA-Public Use
  Company Number: US-Emmaus Medical, Inc.-EMM202201-000005

PATIENT
  Sex: Male

DRUGS (1)
  1. ENDARI [Suspect]
     Active Substance: GLUTAMINE
     Indication: Sickle cell disease
     Dosage: 5 GM (1 PACKET)
     Route: 048
     Dates: start: 20180717

REACTIONS (2)
  - Sickle cell disease [Recovered/Resolved]
  - Product dose omission issue [Unknown]
